FAERS Safety Report 11934891 (Version 20)
Quarter: 2016Q2

REPORT INFORMATION
  Report Type: Report from Study
  Country: US (occurrence: US)
  Receive Date: 20160121
  Receipt Date: 20160620
  Transmission Date: 20160815
  Serious: Yes (Hospitalization, Other)
  Sender: FDA-Public Use
  Company Number: US-GILEAD-2016-0193680

PATIENT
  Age: 47 Year
  Sex: Female
  Weight: 71.66 kg

DRUGS (52)
  1. AMBRISENTAN [Suspect]
     Active Substance: AMBRISENTAN
     Indication: DRUG ABUSE
     Dosage: 10 UNK, UNK
     Route: 065
     Dates: start: 20130404
  2. ORENITRAM [Suspect]
     Active Substance: TREPROSTINIL
     Dosage: 5 MG, BID
     Route: 048
  3. REVATIO [Suspect]
     Active Substance: SILDENAFIL CITRATE
     Indication: PRODUCT USED FOR UNKNOWN INDICATION
     Dosage: 60 MG, TID
     Route: 048
     Dates: start: 201501
  4. UPTRAVI [Concomitant]
     Active Substance: SELEXIPAG
     Dosage: UNK
     Dates: start: 20160224
  5. DIPHENHYDRAMINE. [Concomitant]
     Active Substance: DIPHENHYDRAMINE
  6. XARELTO [Concomitant]
     Active Substance: RIVAROXABAN
  7. INVANZ [Concomitant]
     Active Substance: ERTAPENEM SODIUM
  8. AMBRISENTAN [Suspect]
     Active Substance: AMBRISENTAN
     Indication: PULMONARY HYPERTENSION
     Dosage: 10 MG, QD
     Route: 048
     Dates: start: 20110208
  9. ORENITRAM [Suspect]
     Active Substance: TREPROSTINIL
     Indication: PULMONARY ARTERIAL HYPERTENSION
     Dosage: 10 MG, TID
     Route: 048
  10. ORENITRAM [Suspect]
     Active Substance: TREPROSTINIL
     Dosage: 2.5 UNK, UNK
     Route: 048
  11. SILDENAFIL. [Suspect]
     Active Substance: SILDENAFIL
     Indication: PRODUCT USED FOR UNKNOWN INDICATION
     Dosage: UNK UNK, TID
     Route: 065
  12. PROMETHAZINE [Concomitant]
     Active Substance: PROMETHAZINE\PROMETHAZINE HYDROCHLORIDE
  13. TORSEMIDE. [Concomitant]
     Active Substance: TORSEMIDE
  14. ATIVAN [Concomitant]
     Active Substance: LORAZEPAM
  15. RANITIDINE. [Concomitant]
     Active Substance: RANITIDINE
  16. CALCIUM [Concomitant]
     Active Substance: CALCIUM
  17. LEVOTHYROXIN [Concomitant]
     Active Substance: LEVOTHYROXINE
  18. VITAMIN B12 [Concomitant]
     Active Substance: CYANOCOBALAMIN
  19. CELEBREX [Concomitant]
     Active Substance: CELECOXIB
  20. OMEPRAZOLE. [Concomitant]
     Active Substance: OMEPRAZOLE
  21. ACETYLSALICYLIC ACID [Suspect]
     Active Substance: ASPIRIN
     Indication: PRODUCT USED FOR UNKNOWN INDICATION
     Dosage: UNK
     Route: 065
  22. ORENITRAM [Suspect]
     Active Substance: TREPROSTINIL
     Dosage: 2.5 MG, UNK
     Route: 065
  23. ORENITRAM [Suspect]
     Active Substance: TREPROSTINIL
     Dosage: 7.5 MG, TID
     Route: 048
  24. REMODULIN [Suspect]
     Active Substance: TREPROSTINIL
     Indication: PULMONARY ARTERIAL HYPERTENSION
     Dosage: 0.092 UG/KG, UNK
     Route: 041
     Dates: start: 201406, end: 20160116
  25. TRAMADOL. [Concomitant]
     Active Substance: TRAMADOL
  26. ALPRAZOLAM. [Concomitant]
     Active Substance: ALPRAZOLAM
  27. AMITRIPTYLINE [Concomitant]
     Active Substance: AMITRIPTYLINE
  28. UPTRAVI [Concomitant]
     Active Substance: SELEXIPAG
     Dosage: 200 UNK, UNK
     Dates: start: 20160307
  29. VITAMIN B COMPLEX [Concomitant]
     Active Substance: CYANOCOBALAMIN\DEXPANTHENOL\NIACINAMIDE\PYRIDOXINE HYDROCHLORIDE\RIBOFLAVIN 5^-PHOSPHATE SODIUM\THIAMINE HYDROCHLORIDE\VITAMIN B COMPLEX
  30. BIOTIN [Concomitant]
     Active Substance: BIOTIN
  31. MELOXICAM. [Concomitant]
     Active Substance: MELOXICAM
  32. SINEMET [Concomitant]
     Active Substance: CARBIDOPA\LEVODOPA
  33. ORENITRAM [Suspect]
     Active Substance: TREPROSTINIL
     Dosage: 17.5 MG, QD
     Route: 048
  34. MORPHINE HYDROCHLORIDE [Concomitant]
     Active Substance: MORPHINE HYDROCHLORIDE
  35. DIGOXIN. [Concomitant]
     Active Substance: DIGOXIN
  36. KLOR-CON [Concomitant]
     Active Substance: POTASSIUM CHLORIDE
  37. ONDANSETRAN [Concomitant]
     Active Substance: ONDANSETRON HYDROCHLORIDE
  38. OXYGEN. [Concomitant]
     Active Substance: OXYGEN
  39. SIMVASTATIN. [Concomitant]
     Active Substance: SIMVASTATIN
  40. STOOL SOFTENER [Concomitant]
     Active Substance: DOCUSATE CALCIUM
  41. VITAMIN C [Concomitant]
     Active Substance: ASCORBIC ACID
  42. COLACE [Concomitant]
     Active Substance: DOCUSATE SODIUM
  43. ORENITRAM [Suspect]
     Active Substance: TREPROSTINIL
     Dosage: 7.5 MG, TID
     Route: 048
  44. ORENITRAM [Suspect]
     Active Substance: TREPROSTINIL
     Dosage: 2.5 MG, TID
     Route: 048
     Dates: start: 20151229, end: 20160309
  45. ORENITRAM [Suspect]
     Active Substance: TREPROSTINIL
     Dosage: 5 MG, TID
     Route: 065
     Dates: start: 20160307
  46. FERROUS GLUCONATE [Concomitant]
     Active Substance: FERROUS GLUCONATE
  47. REQUIP [Concomitant]
     Active Substance: ROPINIROLE HYDROCHLORIDE
  48. SPIRONOLACTONE. [Concomitant]
     Active Substance: SPIRONOLACTONE
  49. ACIPHEX [Concomitant]
     Active Substance: RABEPRAZOLE SODIUM
  50. IRON [Concomitant]
     Active Substance: IRON
  51. FLUTICASONE [Concomitant]
     Active Substance: FLUTICASONE\FLUTICASONE PROPIONATE
  52. METOLAZON [Concomitant]
     Active Substance: METOLAZONE

REACTIONS (32)
  - Otorrhoea [Unknown]
  - Palpitations [Unknown]
  - Dizziness [Recovered/Resolved]
  - Walking disability [Recovered/Resolved]
  - Nausea [Unknown]
  - Ear haemorrhage [Unknown]
  - Malaise [Recovered/Resolved]
  - Dyspnoea [Unknown]
  - Drug intolerance [Recovered/Resolved]
  - Localised oedema [Recovered/Resolved]
  - Headache [Unknown]
  - Ulcer [Not Recovered/Not Resolved]
  - Influenza [Recovered/Resolved]
  - Pain [Unknown]
  - Abdominal discomfort [Unknown]
  - Abdominal pain [Not Recovered/Not Resolved]
  - Muscle spasms [Not Recovered/Not Resolved]
  - Nausea [Recovered/Resolved]
  - Abdominal pain upper [Not Recovered/Not Resolved]
  - Clostridium difficile infection [Recovered/Resolved]
  - Syncope [Recovered/Resolved]
  - Unevaluable event [Unknown]
  - Malaise [Recovered/Resolved]
  - Diarrhoea [Recovered/Resolved]
  - Pain in jaw [Unknown]
  - Fluid retention [Recovered/Resolved]
  - Peripheral swelling [Recovered/Resolved]
  - Hypotension [Recovered/Resolved]
  - Vomiting [Recovered/Resolved]
  - Flushing [Unknown]
  - Feeling abnormal [Recovered/Resolved]
  - Fatigue [Unknown]

NARRATIVE: CASE EVENT DATE: 201601
